FAERS Safety Report 5641990-9 (Version None)
Quarter: 2008Q1

REPORT INFORMATION
  Report Type: 
  Country: None (occurrence: None)
  Receive Date: 20080131
  Receipt Date: 20071212
  Transmission Date: 20080703
  Serious: No
  Sender: FDA-Public Use
  Company Number: 163-21880-07120725

PATIENT
  Age: 88 Year
  Sex: Male

DRUGS (3)
  1. REVLIMID [Suspect]
     Indication: MULTIPLE MYELOMA
     Dosage: 100 MG, 2 IN1 D, ORAL; 50 MG, 1 IN 1 D, ORAL; 25 MG, DAILY X 21 DAYS, ORAL
     Route: 048
     Dates: start: 20070330, end: 20070601
  2. REVLIMID [Suspect]
     Indication: MULTIPLE MYELOMA
     Dosage: 100 MG, 2 IN1 D, ORAL; 50 MG, 1 IN 1 D, ORAL; 25 MG, DAILY X 21 DAYS, ORAL
     Route: 048
     Dates: start: 20070619, end: 20070801
  3. REVLIMID [Suspect]
     Indication: MULTIPLE MYELOMA
     Dosage: 100 MG, 2 IN1 D, ORAL; 50 MG, 1 IN 1 D, ORAL; 25 MG, DAILY X 21 DAYS, ORAL
     Route: 048
     Dates: start: 20070817

REACTIONS (1)
  - SOMNOLENCE [None]
